FAERS Safety Report 17810469 (Version 1)
Quarter: 2020Q2

REPORT INFORMATION
  Report Type: Report from Study
  Country: None (occurrence: PT)
  Receive Date: 20200520
  Receipt Date: 20200520
  Transmission Date: 20200714
  Serious: Yes (Congenital Anomaly)
  Sender: FDA-Public Use
  Company Number: PT-ABBVIE-20K-130-3410236-00

PATIENT
  Sex: Male

DRUGS (3)
  1. RITONAVIR. [Suspect]
     Active Substance: RITONAVIR
     Indication: MATERNAL EXPOSURE TIMING UNSPECIFIED
     Route: 064
  2. TENOFOVIR DISOPROXIL FUMARATE + EMTRICITABINE [Suspect]
     Active Substance: EMTRICITABINE\TENOFOVIR DISOPROXIL FUMARATE
     Indication: MATERNAL EXPOSURE TIMING UNSPECIFIED
     Route: 064
  3. DARUNAVIR [Suspect]
     Active Substance: DARUNAVIR
     Indication: MATERNAL EXPOSURE TIMING UNSPECIFIED
     Route: 064

REACTIONS (2)
  - Laryngomalacia [Unknown]
  - Foetal exposure during pregnancy [Unknown]
